FAERS Safety Report 5634974-8 (Version None)
Quarter: 2008Q1

REPORT INFORMATION
  Report Type: 
  Country: None (occurrence: None)
  Receive Date: 20080222
  Receipt Date: 20080211
  Transmission Date: 20080703
  Serious: Yes (Hospitalization)
  Sender: FDA-Public Use
  Company Number: PHHY2008AR01625

PATIENT
  Age: 60 Year
  Sex: Male

DRUGS (2)
  1. DIOVAN HCT [Suspect]
     Indication: HYPERTENSION
  2. DIOVAN HCT [Suspect]
     Dosage: 160 MG, QD
     Route: 048

REACTIONS (1)
  - NEPHROLITHIASIS [None]
